FAERS Safety Report 4938660-9 (Version None)
Quarter: 2006Q1

REPORT INFORMATION
  Report Type: 
  Country: None (occurrence: None)
  Receive Date: 20060127
  Receipt Date: 20051024
  Transmission Date: 20060701
  Serious: Yes (Other)
  Sender: FDA-Public Use
  Company Number: 2005147651

PATIENT
  Sex: Female
  Weight: 63.5036 kg

DRUGS (2)
  1. LYRICA [Suspect]
     Indication: HYPOAESTHESIA
     Dosage: 75 MG (75 MG,1 IN 1 D),ORAL
     Route: 048
  2. CARDIAC THERAPY (CARDIAC THERAPY) [Concomitant]

REACTIONS (2)
  - STOMACH DISCOMFORT [None]
  - VOMITING [None]
